FAERS Safety Report 17432065 (Version 2)
Quarter: 2020Q1

REPORT INFORMATION
  Report Type: Spontaneous
  Country: CH (occurrence: CH)
  Receive Date: 20200218
  Receipt Date: 20200226
  Transmission Date: 20200409
  Serious: Yes (Disabling, Other)
  Sender: FDA-Public Use
  Company Number: CH-009507513-2002CHE006718

PATIENT
  Age: 38 Year
  Sex: Female
  Weight: 67 kg

DRUGS (1)
  1. JANUMET XR [Suspect]
     Active Substance: METFORMIN HYDROCHLORIDE\SITAGLIPTIN PHOSPHATE
     Indication: TYPE 2 DIABETES MELLITUS
     Dosage: ONCE DAILY IN THE EVENING
     Route: 048
     Dates: start: 201905, end: 201911

REACTIONS (5)
  - Incorrect dose administered [Unknown]
  - Partial seizures [Recovered/Resolved]
  - Supraventricular extrasystoles [Unknown]
  - Abnormal behaviour [Recovering/Resolving]
  - Limb injury [Unknown]

NARRATIVE: CASE EVENT DATE: 2019
